FAERS Safety Report 5940403-7 (Version None)
Quarter: 2008Q4

REPORT INFORMATION
  Report Type: 
  Country: None (occurrence: None)
  Receive Date: 20081030
  Receipt Date: 20081008
  Transmission Date: 20090506
  Serious: Yes (Other)
  Sender: FDA-Public Use
  Company Number: US024912

PATIENT
  Age: 63 Year
  Sex: Female

DRUGS (4)
  1. TREANDA [Suspect]
     Indication: FOLLICLE CENTRE LYMPHOMA, FOLLICULAR GRADE I, II, III STAGE IV
     Dosage: USED 3RD CYCLE SHORTLY BEFORE RITUXIMAB UNKNOWN
  2. RITUXIMAB [Suspect]
     Indication: FOLLICLE CENTRE LYMPHOMA, FOLLICULAR GRADE I, II, III STAGE IV
     Dosage: 375 MG CYCLE 1 + 2
  3. RITUXIMAB [Suspect]
     Indication: FOLLICLE CENTRE LYMPHOMA, FOLLICULAR GRADE I, II, III STAGE IV
     Dosage: 200 MG CYCLE 3
  4. CYCLOPHOSPHAMIDE [Concomitant]

REACTIONS (4)
  - BONE MARROW FAILURE [None]
  - BRONCHOPULMONARY ASPERGILLOSIS [None]
  - ENTEROCOCCAL SEPSIS [None]
  - MUCORMYCOSIS [None]
